FAERS Safety Report 4328504-0 (Version None)
Quarter: 2004Q1

REPORT INFORMATION
  Report Type: 
  Country: None (occurrence: None)
  Receive Date: 20040331
  Receipt Date: 20040326
  Transmission Date: 20041129
  Serious: Yes (Hospitalization)
  Sender: FDA-Public Use
  Company Number: JP-MERCK-0403USA02490

PATIENT
  Sex: Male

DRUGS (8)
  1. ASCORBIC ACID [Concomitant]
     Route: 065
  2. ASPIRIN [Concomitant]
     Route: 065
  3. DECADRON [Suspect]
     Route: 048
  4. DONEPEZIL HYDROCHLORIDE [Concomitant]
     Route: 065
  5. OXYBUTYNIN CHLORIDE [Concomitant]
     Route: 065
  6. PLAUNOTOL [Concomitant]
     Route: 065
  7. RABEPRAZOLE SODIUM [Concomitant]
     Route: 065
  8. VITAMIN E NICOTINATE [Concomitant]
     Route: 065

REACTIONS (1)
  - MELAENA [None]
